FAERS Safety Report 8977410 (Version 1)
Quarter: 2012Q4

REPORT INFORMATION
  Report Type: 
  Country: US (occurrence: US)
  Receive Date: 20121220
  Receipt Date: 20121220
  Transmission Date: 20130627
  Serious: No
  Sender: FDA-Public Use
  Company Number: US-PFIZER INC-2012204987

PATIENT
  Sex: Female

DRUGS (2)
  1. LIPITOR [Suspect]
     Dosage: 40 mg, 1 tablet by mouth daily
     Route: 048
  2. LYRICA [Suspect]
     Dosage: 75 mg, 3x/day, take 1 capsule by mouth
     Route: 048

REACTIONS (2)
  - Depression [Unknown]
  - Amnesia [Unknown]
